FAERS Safety Report 24751442 (Version 1)
Quarter: 2024Q4

REPORT INFORMATION
  Report Type: Report from Study
  Country: US (occurrence: US)
  Receive Date: 20241219
  Receipt Date: 20241219
  Transmission Date: 20250114
  Serious: Yes (Hospitalization, Other)
  Sender: ABBVIE
  Company Number: US-ABBVIE-6050107

PATIENT
  Age: 84 Year
  Sex: Female

DRUGS (1)
  1. ALPHAGAN P [Suspect]
     Active Substance: BRIMONIDINE TARTRATE
     Indication: Glaucoma
     Dosage: TIME INTERVAL: 0.33333333 DAYS: STRENGTH 1MG/ML SOL (9541X)
     Route: 047
     Dates: start: 2022

REACTIONS (5)
  - Fall [Recovering/Resolving]
  - Adrenal gland cancer [Recovering/Resolving]
  - Lung neoplasm malignant [Recovering/Resolving]
  - Femur fracture [Unknown]
  - Neoplasm malignant [Recovering/Resolving]

NARRATIVE: CASE EVENT DATE: 20240401
